FAERS Safety Report 7642669-4 (Version None)
Quarter: 2011Q3

REPORT INFORMATION
  Report Type: 
  Country: None (occurrence: None)
  Receive Date: 20110728
  Receipt Date: 20110722
  Transmission Date: 20111222
  Serious: No
  Sender: FDA-Public Use
  Company Number: US-PFIZER INC-2011164694

PATIENT
  Sex: Male
  Weight: 74.376 kg

DRUGS (2)
  1. VIAGRA [Suspect]
     Indication: ERECTILE DYSFUNCTION
     Dosage: 25 MG, AS NEEDED
     Route: 048
     Dates: start: 20110718, end: 20110718
  2. LIPITOR [Concomitant]
     Indication: BLOOD CHOLESTEROL INCREASED
     Dosage: UNK

REACTIONS (4)
  - PALPITATIONS [None]
  - NAUSEA [None]
  - MALAISE [None]
  - DISCOMFORT [None]
